FAERS Safety Report 4826441-6 (Version None)
Quarter: 2005Q4

REPORT INFORMATION
  Report Type: 
  Country: None (occurrence: None)
  Receive Date: 20051014
  Receipt Date: 20050817
  Transmission Date: 20060501
  Serious: No
  Sender: FDA-Public Use
  Company Number: 2005SP002392

PATIENT
  Age: 59 Year
  Sex: Female
  Weight: 62.1428 kg

DRUGS (6)
  1. LUNESTA [Suspect]
     Indication: INSOMNIA
     Dosage: HS;ORAL
     Route: 048
     Dates: start: 20050814, end: 20050816
  2. PRENISONE [Concomitant]
  3. TEGRETOL [Concomitant]
  4. SENOKOT [Concomitant]
  5. EXCEDRIN (MIGRAINE) [Concomitant]
  6. ALEVE [Concomitant]

REACTIONS (1)
  - PARADOXICAL DRUG REACTION [None]
